FAERS Safety Report 21381686 (Version 1)
Quarter: 2022Q3

REPORT INFORMATION
  Report Type: Spontaneous
  Country: US (occurrence: US)
  Receive Date: 20220927
  Receipt Date: 20220927
  Transmission Date: 20221026
  Serious: Yes (Hospitalization, Other)
  Sender: FDA-Public Use
  Company Number: US-GBT-016561

PATIENT
  Age: 32 Year
  Sex: Female

DRUGS (3)
  1. OXBRYTA [Suspect]
     Active Substance: VOXELOTOR
     Indication: Sickle cell disease
     Dates: start: 201912, end: 202002
  2. HYDROXYUREA [Concomitant]
     Active Substance: HYDROXYUREA
     Indication: Product used for unknown indication
  3. JADENU [Suspect]
     Active Substance: DEFERASIROX
     Indication: Product used for unknown indication

REACTIONS (5)
  - Haemoglobin decreased [Unknown]
  - Nausea [Recovering/Resolving]
  - Dehydration [Unknown]
  - Therapy cessation [Unknown]
  - Abdominal pain upper [Unknown]
